FAERS Safety Report 8262555-9 (Version None)
Quarter: 2012Q1

REPORT INFORMATION
  Report Type: 
  Country: None (occurrence: None)
  Receive Date: 20120327
  Receipt Date: 20080731
  Transmission Date: 20120608
  Serious: Yes (Other)
  Sender: FDA-Public Use
  Company Number: PHEH2008US05994

PATIENT
  Age: 71 Year
  Sex: Male

DRUGS (5)
  1. FLOMAX [Concomitant]
  2. HYDROXYUREA [Concomitant]
  3. GLEEVEC [Suspect]
     Indication: CHRONIC MYELOID LEUKAEMIA
     Dosage: 400 MG, QD, ORAL
     Route: 048
     Dates: start: 20040101
  4. PROCARDIA XL [Concomitant]
  5. ALLOPURINOL [Concomitant]

REACTIONS (3)
  - PARAESTHESIA [None]
  - TREATMENT NONCOMPLIANCE [None]
  - NEUROPATHY PERIPHERAL [None]
